FAERS Safety Report 24914043 (Version 1)
Quarter: 2025Q1

REPORT INFORMATION
  Report Type: Spontaneous
  Country: CA (occurrence: CA)
  Receive Date: 20250202
  Receipt Date: 20250202
  Transmission Date: 20250408
  Serious: Yes (Life-Threatening, Hospitalization, Other)
  Sender: HLS THERAPEUTICS
  Company Number: CA-HLS-202500177

PATIENT
  Age: 69 Year
  Sex: Male
  Weight: 49 kg

DRUGS (5)
  1. CLOZARIL [Suspect]
     Active Substance: CLOZAPINE
     Indication: Anxiety
     Route: 048
  2. CLOZARIL [Suspect]
     Active Substance: CLOZAPINE
     Indication: Restlessness
     Route: 048
  3. LACTULOSE [Concomitant]
     Active Substance: LACTULOSE
     Route: 065
  4. METFORMIN [Concomitant]
     Active Substance: METFORMIN HYDROCHLORIDE
     Route: 065
  5. SENNOSIDES [Concomitant]
     Active Substance: SENNOSIDES
     Route: 065

REACTIONS (6)
  - Aspiration [Recovering/Resolving]
  - Faecaloma [Recovering/Resolving]
  - Hypoxia [Recovering/Resolving]
  - Ileus [Recovering/Resolving]
  - Obstruction [Recovering/Resolving]
  - Vomiting [Recovering/Resolving]
